FAERS Safety Report 7185360-3 (Version None)
Quarter: 2010Q4

REPORT INFORMATION
  Report Type: 
  Country: None (occurrence: None)
  Receive Date: 20101222
  Receipt Date: 20101214
  Transmission Date: 20110411
  Serious: Yes (Other)
  Sender: FDA-Public Use
  Company Number: NL-PFIZER INC-2010145824

PATIENT
  Age: 63 Year
  Sex: Female

DRUGS (7)
  1. LYRICA [Suspect]
     Indication: POLYNEUROPATHY
     Dosage: 75 MG, 1X/DAY
     Dates: end: 20101101
  2. REAPAM [Concomitant]
     Dosage: 10 MG, 2X/WEEK
  3. DICLOFENAC [Concomitant]
     Indication: BONE PAIN
     Dosage: 100 MG, UNK
  4. DICLOFENAC [Concomitant]
     Dosage: 25 MG, UNK
  5. SELENIUM [Concomitant]
     Indication: FATIGUE
     Dosage: UNK
  6. ZINC [Concomitant]
     Indication: FATIGUE
     Dosage: UNK
  7. ANTIOXIDANTS [Concomitant]

REACTIONS (6)
  - DIPLOPIA [None]
  - DIZZINESS [None]
  - FEELING ABNORMAL [None]
  - FEELING DRUNK [None]
  - GAIT DISTURBANCE [None]
  - MUSCULOSKELETAL STIFFNESS [None]
